FAERS Safety Report 7743286-8 (Version None)
Quarter: 2011Q3

REPORT INFORMATION
  Report Type: 
  Country: None (occurrence: None)
  Receive Date: 20110825
  Receipt Date: 20110817
  Transmission Date: 20111222
  Serious: Yes (Other)
  Sender: FDA-Public Use
  Company Number: 2011SP039010

PATIENT
  Age: 16 Year
  Sex: Male

DRUGS (2)
  1. KEPPRA [Concomitant]
  2. ASMANEX TWISTHALER [Suspect]
     Indication: ASTHMA
     Dosage: QD
     Dates: start: 20110701

REACTIONS (1)
  - CONVULSION [None]
